FAERS Safety Report 19371799 (Version 1)
Quarter: 2021Q2

REPORT INFORMATION
  Report Type: Spontaneous
  Country: US (occurrence: US)
  Receive Date: 20210604
  Receipt Date: 20210604
  Transmission Date: 20210717
  Serious: No
  Sender: FDA-Public Use
  Company Number: US-SA-2021SA165929

PATIENT
  Age: 3 Week
  Sex: Male

DRUGS (8)
  1. ALPROLIX [Suspect]
     Active Substance: EFTRENONACOG ALFA
     Dosage: UNK
     Route: 042
  2. ALPROLIX [Suspect]
     Active Substance: EFTRENONACOG ALFA
     Dosage: 234 IU, QD OR PRN
     Route: 042
     Dates: start: 20210514
  3. ALPROLIX [Suspect]
     Active Substance: EFTRENONACOG ALFA
     Dosage: 534 IU, QD OR PRN
     Route: 042
     Dates: start: 20210514
  4. ALPROLIX [Suspect]
     Active Substance: EFTRENONACOG ALFA
     Indication: FACTOR IX DEFICIENCY
     Dosage: 1480 IU, QW
     Route: 042
     Dates: start: 201912
  5. ALPROLIX [Suspect]
     Active Substance: EFTRENONACOG ALFA
     Dosage: UNK
     Route: 042
  6. ALPROLIX [Suspect]
     Active Substance: EFTRENONACOG ALFA
     Dosage: 234 IU, QD OR PRN
     Route: 042
     Dates: start: 20210514
  7. ALPROLIX [Suspect]
     Active Substance: EFTRENONACOG ALFA
     Indication: FACTOR IX DEFICIENCY
     Dosage: 1480 IU, QW
     Route: 042
     Dates: start: 201912
  8. ALPROLIX [Suspect]
     Active Substance: EFTRENONACOG ALFA
     Dosage: 534 IU, QD OR PRN
     Route: 042
     Dates: start: 20210514

REACTIONS (2)
  - Limb injury [Unknown]
  - Wrong dose [Unknown]

NARRATIVE: CASE EVENT DATE: 20170428
